FAERS Safety Report 8381194-2 (Version None)
Quarter: 2012Q2

REPORT INFORMATION
  Report Type: 
  Country: None (occurrence: None)
  Receive Date: 20120523
  Receipt Date: 20120509
  Transmission Date: 20120825
  Serious: Yes (Other)
  Sender: FDA-Public Use
  Company Number: US-ENDO PHARMACEUTICALS INC.-OPCR20120797

PATIENT
  Sex: Male

DRUGS (7)
  1. OPANA ER [Suspect]
     Indication: BACK PAIN
     Route: 048
     Dates: start: 20120419
  2. METOPROLOL [Concomitant]
     Indication: CARDIAC VALVE DISEASE
     Dosage: UNK
     Route: 048
  3. VALIUM [Concomitant]
     Indication: ANXIETY
     Dosage: UNK
     Route: 048
  4. NORCO [Concomitant]
     Indication: BREAKTHROUGH PAIN
     Dosage: 10/325 MG
     Route: 048
  5. ZOLOFT [Concomitant]
     Indication: DEPRESSION
     Dosage: UNK
     Route: 048
  6. OPANA ER [Suspect]
     Indication: CHEST PAIN
  7. OPANA ER [Suspect]
     Indication: ABDOMINAL PAIN

REACTIONS (4)
  - INTENTIONAL DRUG MISUSE [None]
  - WITHDRAWAL SYNDROME [None]
  - DRUG EFFECT DELAYED [None]
  - MEDICATION RESIDUE [None]
